FAERS Safety Report 6696021-9 (Version None)
Quarter: 2010Q2

REPORT INFORMATION
  Report Type: 
  Country: None (occurrence: None)
  Receive Date: 20100426
  Receipt Date: 20100413
  Transmission Date: 20101027
  Serious: Yes (Other)
  Sender: FDA-Public Use
  Company Number: PHHY2010US23274

PATIENT
  Sex: Female

DRUGS (1)
  1. TEKTURNA [Suspect]
     Indication: HYPERTENSION
     Dosage: 150
     Route: 048

REACTIONS (4)
  - BLOOD LACTIC ACID INCREASED [None]
  - HEADACHE [None]
  - LETHARGY [None]
  - WEIGHT DECREASED [None]
